FAERS Safety Report 20310286 (Version 1)
Quarter: 2022Q1

REPORT INFORMATION
  Report Type: Spontaneous
  Country: SK (occurrence: SK)
  Receive Date: 20220107
  Receipt Date: 20220107
  Transmission Date: 20220423
  Serious: Yes (Death, Other)
  Sender: FDA-Public Use
  Company Number: SK-BAYER-2022A000258

PATIENT
  Age: 53 Year
  Sex: Male

DRUGS (2)
  1. REGORAFENIB [Suspect]
     Active Substance: REGORAFENIB
     Indication: Gastrointestinal stromal tumour
     Dosage: UNK
     Dates: start: 201701, end: 201803
  2. IMATINIB [Concomitant]
     Active Substance: IMATINIB
     Dosage: UNK

REACTIONS (7)
  - Death [Fatal]
  - Pancreatectomy [None]
  - Diaphragmatic operation [None]
  - Splenectomy [None]
  - Anisocytosis [None]
  - Gastrointestinal stromal tumour [None]
  - Metastases to peritoneum [None]

NARRATIVE: CASE EVENT DATE: 20170601
